FAERS Safety Report 15310238 (Version 1)
Quarter: 2018Q3

REPORT INFORMATION
  Report Type: Spontaneous
  Country: US (occurrence: US)
  Receive Date: 20180813
  Receipt Date: 20180813
  Transmission Date: 20181010
  Serious: Yes (Hospitalization)
  Sender: FDA-Public Use
  Company Number: None

PATIENT
  Age: 82 Year
  Sex: Female
  Weight: 60.78 kg

DRUGS (10)
  1. XARELTO [Concomitant]
     Active Substance: RIVAROXABAN
  2. EYE DROPS THERA TEARS [Concomitant]
  3. ATENOLOL 50MG [Suspect]
     Active Substance: ATENOLOL
  4. SIMVASTATIN. [Concomitant]
     Active Substance: SIMVASTATIN
  5. NATURE^S BOUNTY ? HAIR, SKIN + NAILS [Concomitant]
  6. COUMADIN [Suspect]
     Active Substance: WARFARIN SODIUM
     Indication: ATRIAL FIBRILLATION
     Dosage: ?          QUANTITY:2 DF DOSAGE FORM;?
     Route: 048
     Dates: start: 199807, end: 20180410
  7. ATENOLOL. [Concomitant]
     Active Substance: ATENOLOL
  8. CALTRATE WITH D3 [Concomitant]
  9. LATANOPROST. [Concomitant]
     Active Substance: LATANOPROST
  10. DIGOXIN. [Concomitant]
     Active Substance: DIGOXIN

REACTIONS (7)
  - Bone loss [None]
  - Tremor [None]
  - Hypertension [None]
  - Pain in extremity [None]
  - Alopecia [None]
  - Varicose vein [None]
  - Visual impairment [None]

NARRATIVE: CASE EVENT DATE: 20150501
